FAERS Safety Report 24205939 (Version 1)
Quarter: 2024Q3

REPORT INFORMATION
  Report Type: Spontaneous
  Country: US (occurrence: US)
  Receive Date: 20240813
  Receipt Date: 20240813
  Transmission Date: 20241017
  Serious: Yes (Hospitalization, Other)
  Sender: DR REDDYS
  Company Number: None

PATIENT
  Age: 74 Year
  Sex: Female

DRUGS (6)
  1. TACROLIMUS [Suspect]
     Active Substance: TACROLIMUS
     Indication: Immunosuppressant drug therapy
     Dosage: ORIGINAL TACROLIMUS DOSING
  2. TACROLIMUS [Suspect]
     Active Substance: TACROLIMUS
  3. TACROLIMUS [Suspect]
     Active Substance: TACROLIMUS
     Dosage: DECREASED THE TACROLIMUS REGIMEN
  4. NIFEDIPINE [Concomitant]
     Active Substance: NIFEDIPINE
     Indication: Hypertension
  5. METOPROLOL [Concomitant]
     Active Substance: METOPROLOL
     Indication: Hypertension
  6. LORAZEPAM [Concomitant]
     Active Substance: LORAZEPAM
     Indication: Anxiety

REACTIONS (3)
  - Acute coronary syndrome [Recovered/Resolved]
  - Immunosuppressant drug level increased [Recovered/Resolved]
  - Gastrointestinal disorder [Recovered/Resolved]
